FAERS Safety Report 20428854 (Version 1)
Quarter: 2022Q1

REPORT INFORMATION
  Report Type: Spontaneous
  Country: US (occurrence: US)
  Receive Date: 20220204
  Receipt Date: 20220204
  Transmission Date: 20220424
  Serious: No
  Sender: FDA-Public Use
  Company Number: US-ALLERGAN-2202269US

PATIENT
  Sex: Male
  Weight: 86.168 kg

DRUGS (3)
  1. VUITY [Suspect]
     Active Substance: PILOCARPINE HYDROCHLORIDE
     Indication: Presbyopia
     Dosage: 2 GTT
     Dates: start: 20220114, end: 20220114
  2. VUITY [Suspect]
     Active Substance: PILOCARPINE HYDROCHLORIDE
     Dosage: 2 GTT, TID
     Dates: start: 20220113, end: 20220113
  3. Unspecified OTC medication [Concomitant]
     Dosage: UNK

REACTIONS (2)
  - Inappropriate schedule of product administration [Unknown]
  - Therapeutic response decreased [Unknown]
